FAERS Safety Report 6531805-9 (Version None)
Quarter: 2010Q1

REPORT INFORMATION
  Report Type: 
  Country: None (occurrence: None)
  Receive Date: 20100108
  Receipt Date: 20100104
  Transmission Date: 20100710
  Serious: Yes (Other)
  Sender: FDA-Public Use
  Company Number: B0624250A

PATIENT
  Sex: Male

DRUGS (1)
  1. LAMICTAL [Suspect]
     Indication: EPILEPSY
     Dosage: 15MG PER DAY
     Route: 065

REACTIONS (4)
  - ANXIETY [None]
  - EPILEPSY [None]
  - HALLUCINATION [None]
  - PSYCHOTIC DISORDER [None]
